FAERS Safety Report 8334503-4 (Version None)
Quarter: 2012Q2

REPORT INFORMATION
  Report Type: 
  Country: None (occurrence: None)
  Receive Date: 20120503
  Receipt Date: 20120425
  Transmission Date: 20120825
  Serious: No
  Sender: FDA-Public Use
  Company Number: US-PFIZER INC-2012096223

PATIENT
  Sex: Female
  Weight: 42.63 kg

DRUGS (5)
  1. PREMARIN [Suspect]
     Indication: INCONTINENCE
  2. LOSARTAN [Concomitant]
     Dosage: 100 MG,DAILY
     Dates: start: 20101101
  3. PREMARIN [Suspect]
     Indication: OFF LABEL USE
     Dosage: UNK, SIX TIMES A WEEK
     Dates: start: 20120305
  4. LOSARTAN [Concomitant]
     Indication: HYPERTENSION
     Dosage: 50 MG, 2X/DAY
     Dates: start: 20100901
  5. AMLODIPINE [Concomitant]
     Indication: HYPERTENSION
     Dosage: UNK, DAILY
     Dates: start: 20101001

REACTIONS (3)
  - INCORRECT DOSE ADMINISTERED [None]
  - COUGH [None]
  - OROPHARYNGEAL DISCOMFORT [None]
